FAERS Safety Report 4737363-3 (Version None)
Quarter: 2005Q3

REPORT INFORMATION
  Report Type: 
  Country: None (occurrence: None)
  Receive Date: 20050809
  Receipt Date: 20050728
  Transmission Date: 20060218
  Serious: Yes (Hospitalization)
  Sender: FDA-Public Use
  Company Number: CA-BOEHRINGER INGELHEIM PHARMACEUTICALS, INC.-2005-CN-00833CN

PATIENT
  Age: 71 Year
  Sex: Male

DRUGS (2)
  1. MIRAPEX [Suspect]
     Indication: PARKINSON'S DISEASE
  2. SINEMET [Concomitant]

REACTIONS (4)
  - ABNORMAL BEHAVIOUR [None]
  - DELUSIONAL DISORDER, UNSPECIFIED TYPE [None]
  - GAMBLING [None]
  - PSYCHOTIC DISORDER [None]
